FAERS Safety Report 20083088 (Version 2)
Quarter: 2022Q1

REPORT INFORMATION
  Report Type: Report from Study
  Country: BR (occurrence: BR)
  Receive Date: 20211117
  Receipt Date: 20220209
  Transmission Date: 20220423
  Serious: Yes (Hospitalization, Other)
  Sender: FDA-Public Use
  Company Number: BR-ABBVIE-21K-020-4164173-00

PATIENT
  Sex: Female
  Weight: 60 kg

DRUGS (2)
  1. RINVOQ [Suspect]
     Active Substance: UPADACITINIB
     Indication: Rheumatoid arthritis
     Dosage: PER DAY
     Route: 048
     Dates: start: 20210707
  2. LOSARTAN [Concomitant]
     Active Substance: LOSARTAN
     Indication: Hypertension
     Dosage: PER DAY

REACTIONS (9)
  - Cataract [Recovering/Resolving]
  - Pain [Recovering/Resolving]
  - Visual impairment [Unknown]
  - Vision blurred [Not Recovered/Not Resolved]
  - Illiteracy [Unknown]
  - Walking aid user [Unknown]
  - Pain in extremity [Recovering/Resolving]
  - Back pain [Not Recovered/Not Resolved]
  - Pain in extremity [Not Recovered/Not Resolved]

NARRATIVE: CASE EVENT DATE: 20210101
